FAERS Safety Report 9174725 (Version 1)
Quarter: 2013Q1

REPORT INFORMATION
  Report Type: Spontaneous
  Country: FR (occurrence: FR)
  Receive Date: 20130320
  Receipt Date: 20130320
  Transmission Date: 20140127
  Serious: Yes (Life-Threatening, Hospitalization, Other)
  Sender: FDA-Public Use
  Company Number: FR-ELI_LILLY_AND_COMPANY-FR201303002778

PATIENT
  Age: 28 Year
  Sex: Female

DRUGS (3)
  1. CYMBALTA [Suspect]
     Dosage: UNK
     Dates: start: 20121231, end: 20121231
  2. TERCIAN [Concomitant]
     Dosage: UNK
     Dates: start: 20121231, end: 20121231
  3. ATARAX [Concomitant]
     Dosage: UNK
     Dates: start: 20121231, end: 20121231

REACTIONS (6)
  - Intentional overdose [Recovered/Resolved]
  - Coma [Recovered/Resolved]
  - Pneumonia aspiration [Unknown]
  - Incontinence [Unknown]
  - Somnolence [Unknown]
  - Hypotension [Unknown]
